FAERS Safety Report 13055851 (Version 1)
Quarter: 2016Q4

REPORT INFORMATION
  Report Type: Spontaneous
  Country: CN (occurrence: CN)
  Receive Date: 20161222
  Receipt Date: 20161222
  Transmission Date: 20170207
  Serious: Yes (Life-Threatening)
  Sender: FDA-Public Use
  Company Number: PHHY2016CN175487

PATIENT
  Sex: Male
  Weight: 70 kg

DRUGS (1)
  1. SEBIVO [Suspect]
     Active Substance: TELBIVUDINE
     Indication: HEPATITIS B
     Dosage: 1 DF, QD
     Route: 048
     Dates: start: 20150401, end: 20161018

REACTIONS (4)
  - Rhabdomyolysis [Recovering/Resolving]
  - Cardiac failure [Recovering/Resolving]
  - Blood lactate dehydrogenase increased [Recovering/Resolving]
  - Liver disorder [Recovering/Resolving]
